FAERS Safety Report 23598865 (Version 6)
Quarter: 2024Q2

REPORT INFORMATION
  Report Type: Spontaneous
  Country: US (occurrence: None)
  Receive Date: 20240306
  Receipt Date: 20240524
  Transmission Date: 20240715
  Serious: No
  Sender: FDA-Public Use
  Company Number: 2024A053921

PATIENT
  Age: 21379 Day
  Sex: Female

DRUGS (1)
  1. IMFINZI [Suspect]
     Active Substance: DURVALUMAB
     Indication: Non-small cell lung cancer
     Route: 042
     Dates: start: 20230628

REACTIONS (9)
  - Blister [Unknown]
  - Rash [Unknown]
  - Pain [Unknown]
  - Chills [Unknown]
  - Influenza like illness [Unknown]
  - Abdominal pain upper [Unknown]
  - Rash [Unknown]
  - Constipation [Unknown]
  - Abdominal pain upper [Unknown]

NARRATIVE: CASE EVENT DATE: 20240203
